FAERS Safety Report 6820198-5 (Version None)
Quarter: 2010Q3

REPORT INFORMATION
  Report Type: 
  Country: None (occurrence: None)
  Receive Date: 20100707
  Receipt Date: 20100625
  Transmission Date: 20110219
  Serious: Yes (Hospitalization, Other)
  Sender: FDA-Public Use
  Company Number: US-PFIZER INC-2010079913

PATIENT
  Sex: Male
  Weight: 101.13 kg

DRUGS (4)
  1. LYRICA [Suspect]
     Dosage: 150 MG, UNK
     Dates: start: 20100604
  2. ZOLOFT [Concomitant]
     Dosage: UNK
  3. NAVANE [Concomitant]
     Dosage: UNK
  4. ENALAPRIL [Concomitant]
     Indication: HYPERTENSION
     Dosage: UNK

REACTIONS (4)
  - CIRCULATORY COLLAPSE [None]
  - INCORRECT ROUTE OF DRUG ADMINISTRATION [None]
  - RESPIRATORY ARREST [None]
  - UNRESPONSIVE TO STIMULI [None]
